FAERS Safety Report 5276683-3 (Version None)
Quarter: 2007Q1

REPORT INFORMATION
  Report Type: 
  Country: None (occurrence: None)
  Receive Date: 20070327
  Receipt Date: 20070315
  Transmission Date: 20070707
  Serious: Yes (Hospitalization)
  Sender: FDA-Public Use
  Company Number: PHEH2007US03190

PATIENT
  Sex: Female

DRUGS (1)
  1. ENABLEX [Suspect]

REACTIONS (5)
  - BLADDER CATHETERISATION [None]
  - BLADDER DISORDER [None]
  - HYDRONEPHROSIS [None]
  - URINARY RETENTION [None]
  - VESICOURETERIC REFLUX [None]
